FAERS Safety Report 26040646 (Version 2)
Quarter: 2025Q4

REPORT INFORMATION
  Report Type: Spontaneous
  Country: BA (occurrence: BA)
  Receive Date: 20251113
  Receipt Date: 20251120
  Transmission Date: 20260118
  Serious: Yes (Other)
  Sender: BAYER HEALTHCARE PHARMACEUTICALS INC.
  Company Number: BA-BAYER-2025A149376

PATIENT
  Age: 14 Year
  Sex: Female
  Weight: 37 kg

DRUGS (1)
  1. GADOBUTROL [Suspect]
     Active Substance: GADOBUTROL
     Indication: Magnetic resonance imaging
     Dosage: 3.5 ML, ONCE
     Route: 042
     Dates: start: 20251022, end: 20251022

REACTIONS (5)
  - Restlessness [Unknown]
  - Nausea [Unknown]
  - Feeling hot [Unknown]
  - Hyperhidrosis [Unknown]
  - Malaise [Unknown]

NARRATIVE: CASE EVENT DATE: 20251022
